FAERS Safety Report 12032600 (Version 1)
Quarter: 2016Q1

REPORT INFORMATION
  Report Type: Report from Study
  Country: US (occurrence: US)
  Receive Date: 20160207
  Receipt Date: 20160207
  Transmission Date: 20160526
  Serious: No
  Sender: FDA-Public Use
  Company Number: US-ABBVIE-15K-163-1513555-00

PATIENT
  Age: 41 Year
  Sex: Female

DRUGS (2)
  1. HUMIRA [Suspect]
     Active Substance: ADALIMUMAB
     Indication: PSORIASIS
     Route: 058
     Dates: start: 20151105, end: 20151105
  2. HUMIRA [Suspect]
     Active Substance: ADALIMUMAB
     Route: 058
     Dates: start: 20151112

REACTIONS (9)
  - Helplessness [Unknown]
  - Emotional disorder [Unknown]
  - Frustration tolerance decreased [Not Recovered/Not Resolved]
  - Nasopharyngitis [Unknown]
  - Emotional distress [Not Recovered/Not Resolved]
  - Pruritus [Not Recovered/Not Resolved]
  - Pain [Unknown]
  - Skin irritation [Unknown]
  - Fatigue [Unknown]

NARRATIVE: CASE EVENT DATE: 2015
